FAERS Safety Report 4931065-6 (Version None)
Quarter: 2006Q1

REPORT INFORMATION
  Report Type: 
  Country: None (occurrence: None)
  Receive Date: 20060302
  Receipt Date: 20050711
  Transmission Date: 20060701
  Serious: Yes (Other)
  Sender: FDA-Public Use
  Company Number: US-MERCK-0507USA01427

PATIENT
  Age: 54 Year
  Sex: Female
  Weight: 86 kg

DRUGS (5)
  1. VIOXX [Suspect]
     Indication: ARTHRALGIA
     Route: 048
     Dates: start: 20020108, end: 20021017
  2. VIOXX [Suspect]
     Route: 048
     Dates: start: 20021017, end: 20021018
  3. VIOXX [Suspect]
     Route: 048
     Dates: start: 20021018, end: 20041005
  4. PREMARIN [Concomitant]
     Route: 065
     Dates: start: 19920101, end: 20030301
  5. BLOOD THINNER (UNSPECIFIED) [Concomitant]
     Route: 065

REACTIONS (8)
  - CEREBROVASCULAR ACCIDENT [None]
  - CHEST PAIN [None]
  - DYSFUNCTIONAL UTERINE BLEEDING [None]
  - DYSPNOEA [None]
  - FUNGAL INFECTION [None]
  - HYPOAESTHESIA ORAL [None]
  - MYOCARDIAL INFARCTION [None]
  - SWOLLEN TONGUE [None]
